FAERS Safety Report 5782130-5 (Version None)
Quarter: 2008Q2

REPORT INFORMATION
  Report Type: 
  Country: None (occurrence: None)
  Receive Date: 20080618
  Receipt Date: 20080611
  Transmission Date: 20081010
  Serious: Yes (Death)
  Sender: FDA-Public Use
  Company Number: 062-21880-08041228

PATIENT
  Age: 59 Year
  Sex: Female
  Weight: 52 kg

DRUGS (8)
  1. REVLIMID [Suspect]
     Indication: MULTIPLE MYELOMA
     Dosage: 15 MG, 1 IN 2 D, ORAL; 15 MG, 1 IN 2 D, ORAL
     Route: 048
     Dates: start: 20070813, end: 20070822
  2. REVLIMID [Suspect]
     Indication: MULTIPLE MYELOMA
     Dosage: 15 MG, 1 IN 2 D, ORAL; 15 MG, 1 IN 2 D, ORAL
     Route: 048
     Dates: start: 20071008, end: 20071010
  3. DEXANETHASONE         (DEXAMETHASONE) [Concomitant]
  4. L-THYROXIN          (LEVOTHYROXINE) [Concomitant]
  5. ZOLPIDEM TARTRATE [Concomitant]
  6. POTASSIUM      (POTASSIUM) (CAPSULES) [Concomitant]
  7. CALCIUM     (CALCIUM) [Concomitant]
  8. VENLAFAXINE HCL [Concomitant]

REACTIONS (1)
  - DISEASE PROGRESSION [None]
